FAERS Safety Report 4977588-5 (Version None)
Quarter: 2006Q2

REPORT INFORMATION
  Report Type: 
  Country: None (occurrence: None)
  Receive Date: 20060414
  Receipt Date: 20060404
  Transmission Date: 20061013
  Serious: Yes (Hospitalization)
  Sender: FDA-Public Use
  Company Number: FRWYE380510FEB06

PATIENT
  Sex: Female

DRUGS (4)
  1. EFFEXOR [Suspect]
     Indication: DEPRESSION
     Dosage: 200 MG TOTAL DAILY TRANSPLACENTAL
     Route: 064
     Dates: start: 20050910, end: 20060113
  2. ANAFRANIL [Suspect]
     Indication: DEPRESSION
     Dosage: 185 MG TRANSPLACENTAL
     Route: 064
     Dates: start: 20050910, end: 20060113
  3. TEGRETOL [Suspect]
     Indication: BIPOLAR I DISORDER
     Dosage: TRANSPLACENTAL
     Route: 064
     Dates: end: 20050909
  4. TERCIAN (CYAMEMAZINE) [Concomitant]

REACTIONS (11)
  - AGITATION NEONATAL [None]
  - CONGENITAL PULMONARY HYPERTENSION [None]
  - CONGENITAL PULMONARY VALVE DISORDER [None]
  - CYANOSIS NEONATAL [None]
  - DRUG EXPOSURE DURING PREGNANCY [None]
  - DRUG WITHDRAWAL SYNDROME NEONATAL [None]
  - FEVER NEONATAL [None]
  - HYPERTONIA NEONATAL [None]
  - NEONATAL TACHYPNOEA [None]
  - PATENT DUCTUS ARTERIOSUS [None]
  - SMALL FOR DATES BABY [None]
